FAERS Safety Report 24269799 (Version 1)
Quarter: 2024Q3

REPORT INFORMATION
  Report Type: Spontaneous
  Country: US (occurrence: US)
  Receive Date: 20240830
  Receipt Date: 20240830
  Transmission Date: 20241016
  Serious: No
  Sender: MERCK
  Company Number: US-009507513-2408USA005560

PATIENT
  Sex: Female

DRUGS (1)
  1. WINREVAIR [Interacting]
     Active Substance: SOTATERCEPT-CSRK
     Dosage: 0.9 MILLILITER
     Dates: start: 2024

REACTIONS (1)
  - Vasculitic rash [Not Recovered/Not Resolved]

NARRATIVE: CASE EVENT DATE: 20240101
